FAERS Safety Report 25212000 (Version 1)
Quarter: 2025Q2

REPORT INFORMATION
  Report Type: Report from Study
  Country: US (occurrence: US)
  Receive Date: 20250418
  Receipt Date: 20250418
  Transmission Date: 20250717
  Serious: Yes (Other)
  Sender: ALEXION PHARMACEUTICALS
  Company Number: US-AstraZeneca-CH-00847548A

PATIENT
  Age: 85 Year
  Weight: 56.4 kg

DRUGS (2)
  1. CALQUENCE [Suspect]
     Active Substance: ACALABRUTINIB
     Indication: Chronic lymphocytic leukaemia
  2. CALQUENCE [Suspect]
     Active Substance: ACALABRUTINIB
     Indication: Thrombocytopenia

REACTIONS (3)
  - Back pain [Unknown]
  - Neck pain [Unknown]
  - Road traffic accident [Unknown]
